FAERS Safety Report 14620726 (Version 3)
Quarter: 2018Q2

REPORT INFORMATION
  Report Type: Spontaneous
  Country: US (occurrence: US)
  Receive Date: 20180309
  Receipt Date: 20180620
  Transmission Date: 20180711
  Serious: Yes (Hospitalization)
  Sender: FDA-Public Use
  Company Number: US-ACTELION-A-NJ2018-168727

PATIENT
  Age: 85 Year
  Sex: Female

DRUGS (2)
  1. TRACLEER [Suspect]
     Active Substance: BOSENTAN
     Indication: PULMONARY ARTERIAL HYPERTENSION
     Dosage: 125 MG, BID
     Route: 048
  2. AMLODIPINE [Concomitant]
     Active Substance: AMLODIPINE BESYLATE

REACTIONS (9)
  - Upper limb fracture [Unknown]
  - Transfusion [Unknown]
  - Renal disorder [Unknown]
  - Blood pressure increased [Unknown]
  - Pulmonary hypertension [Unknown]
  - Anaemia [Unknown]
  - Diarrhoea [Unknown]
  - Fall [Unknown]
  - Back injury [Unknown]
